FAERS Safety Report 12611499 (Version 2)
Quarter: 2016Q3

REPORT INFORMATION
  Report Type: Spontaneous
  Country: CA (occurrence: CA)
  Receive Date: 20160801
  Receipt Date: 20160909
  Transmission Date: 20161109
  Serious: Yes (Death, Hospitalization, Other)
  Sender: FDA-Public Use
  Company Number: CA-MALLINCKRODT-T201603295

PATIENT
  Age: 34 Year
  Sex: Female

DRUGS (3)
  1. METHADOSE [Suspect]
     Active Substance: METHADONE HYDROCHLORIDE
     Indication: ALCOHOL DETOXIFICATION
  2. QUETIAPINE. [Concomitant]
     Active Substance: QUETIAPINE
     Dosage: UNK
     Dates: end: 2014
  3. METHADOSE [Suspect]
     Active Substance: METHADONE HYDROCHLORIDE
     Indication: DRUG DETOXIFICATION
     Dosage: (DIVIDED IN 1-3 DAILY DOSES)
     Route: 065

REACTIONS (11)
  - Status epilepticus [Unknown]
  - Cardiac arrest [Fatal]
  - Brain hypoxia [Fatal]
  - Loss of consciousness [Unknown]
  - Stress cardiomyopathy [Unknown]
  - Foaming at mouth [Unknown]
  - Electrocardiogram QT prolonged [Unknown]
  - Torsade de pointes [Fatal]
  - Overdose [Unknown]
  - Condition aggravated [Unknown]
  - Sleep talking [Unknown]

NARRATIVE: CASE EVENT DATE: 2014
